FAERS Safety Report 16324851 (Version 1)
Quarter: 2019Q2

REPORT INFORMATION
  Report Type: Spontaneous
  Country: US (occurrence: US)
  Receive Date: 20190517
  Receipt Date: 20190517
  Transmission Date: 20190711
  Serious: Yes (Hospitalization)
  Sender: FDA-Public Use
  Company Number: US-ROCHE-2315012

PATIENT
  Age: 34 Year
  Sex: Female

DRUGS (1)
  1. RITUXAN [Suspect]
     Active Substance: RITUXIMAB
     Indication: NEUROMYELITIS OPTICA SPECTRUM DISORDER
     Dosage: ONGOING: YES
     Route: 041

REACTIONS (16)
  - Pruritus [Not Recovered/Not Resolved]
  - Neuromyelitis optica spectrum disorder [Not Recovered/Not Resolved]
  - Vision blurred [Recovered/Resolved with Sequelae]
  - Headache [Unknown]
  - Constipation [Recovered/Resolved]
  - Diarrhoea [Recovered/Resolved]
  - Herpes zoster [Not Recovered/Not Resolved]
  - Pain [Unknown]
  - Off label use [Unknown]
  - Burning sensation [Unknown]
  - Vomiting [Recovered/Resolved]
  - Erythema [Unknown]
  - Intentional product use issue [Unknown]
  - Blindness unilateral [Not Recovered/Not Resolved]
  - Product storage error [Unknown]
  - Maternal exposure during pregnancy [Unknown]

NARRATIVE: CASE EVENT DATE: 20190426
